FAERS Safety Report 20454787 (Version 3)
Quarter: 2023Q1

REPORT INFORMATION
  Report Type: Spontaneous
  Country: US (occurrence: US)
  Receive Date: 20220210
  Receipt Date: 20230310
  Transmission Date: 20230418
  Serious: Yes (Hospitalization, Other)
  Sender: FDA-Public Use
  Company Number: US-NOVARTISPH-NVSC2022US026715

PATIENT
  Age: 1 Year
  Sex: Female
  Weight: 9.3 kg

DRUGS (8)
  1. PREDNISOLONE [Suspect]
     Active Substance: PREDNISOLONE
     Indication: Immunosuppression
     Dosage: UNK UNK, QD (DAILY DOSING)
     Route: 048
     Dates: start: 20220127, end: 20220209
  2. DEXAMETHASONE [Concomitant]
     Active Substance: DEXAMETHASONE
     Indication: Immunosuppression
     Dosage: UNK, ONCE
     Route: 042
     Dates: start: 20220205, end: 20220205
  3. DEXAMETHASONE [Concomitant]
     Active Substance: DEXAMETHASONE
     Indication: Immunosuppression
     Dosage: 3 MG, QD
     Route: 048
     Dates: start: 20220207, end: 20220209
  4. METHYLPREDNISOLONE [Concomitant]
     Active Substance: METHYLPREDNISOLONE
     Indication: Immunosuppression
     Dosage: 15 MG (ONCE)
     Route: 042
     Dates: start: 20220206, end: 20220206
  5. METHYLPREDNISOLONE [Concomitant]
     Active Substance: METHYLPREDNISOLONE
     Indication: Platelet count decreased
  6. VITAMINS NOS [Concomitant]
     Active Substance: VITAMINS
     Indication: Product used for unknown indication
     Dosage: UNK, QD (WITH IRON, FORMULATION: ORAL LIQUID)
     Route: 065
  7. EPIPEN [Concomitant]
     Active Substance: EPINEPHRINE
     Indication: Product used for unknown indication
     Dosage: UNK (0.3 MG INJECTIBLE KIT)
     Route: 065
  8. FERROUS SULFATE [Concomitant]
     Active Substance: FERROUS SULFATE
     Indication: Product used for unknown indication
     Dosage: UNK, QD (FORMULATION: ORAL LIQUID)
     Route: 065

REACTIONS (11)
  - Thrombocytopenia [Unknown]
  - Dehydration [Unknown]
  - Drug intolerance [Recovered/Resolved]
  - Pyrexia [Recovering/Resolving]
  - Gastrooesophageal reflux disease [Recovering/Resolving]
  - Vomiting [Unknown]
  - Asthenia [Unknown]
  - Muscle disorder [Unknown]
  - Tremor [Unknown]
  - Product use complaint [Unknown]
  - Wrong technique in product usage process [Unknown]

NARRATIVE: CASE EVENT DATE: 20220131
